FAERS Safety Report 13533363 (Version 1)
Quarter: 2017Q2

REPORT INFORMATION
  Report Type: Spontaneous
  Country: US (occurrence: US)
  Receive Date: 20170510
  Receipt Date: 20170510
  Transmission Date: 20170830
  Serious: Yes (Other)
  Sender: FDA-Public Use
  Company Number: US-TARO-2016TAR00373

PATIENT
  Age: 16 Year
  Sex: Female
  Weight: 68.48 kg

DRUGS (20)
  1. VERAPAMIL [Concomitant]
     Active Substance: VERAPAMIL HYDROCHLORIDE
  2. POLYETHYLENE GLYCOL [Concomitant]
     Active Substance: POLYETHYLENE GLYCOLS
  3. CARBAMAZEPINE EXTENDED RELEASE TABLETS USP 400MG [Suspect]
     Active Substance: CARBAMAZEPINE
     Dosage: 300 MG, 2X/DAY
  4. STRATTERA [Concomitant]
     Active Substance: ATOMOXETINE HYDROCHLORIDE
     Dosage: UNK
  5. BUDESONIDE INHALER [Concomitant]
  6. VITAMIN D [Concomitant]
     Active Substance: CHOLECALCIFEROL
  7. MELATONIN [Concomitant]
     Active Substance: MELATONIN
  8. TOPICAL ADAPALENE GEL [Concomitant]
     Route: 061
  9. MOMETASONE NASAL SPRAY [Concomitant]
  10. OXYBUTYNIN [Concomitant]
     Active Substance: OXYBUTYNIN
  11. IBUPROFEN. [Concomitant]
     Active Substance: IBUPROFEN
  12. CARBAMAZEPINE EXTENDED RELEASE TABLETS USP 400MG [Suspect]
     Active Substance: CARBAMAZEPINE
     Indication: BIPOLAR I DISORDER
     Dosage: 400 MG, 2X/DAY
     Route: 048
     Dates: start: 201005
  13. AZELASTINE NASAL SPRAY [Concomitant]
  14. CARBAMAZEPINE EXTENDED RELEASE TABLETS USP 400MG [Suspect]
     Active Substance: CARBAMAZEPINE
     Dosage: 1000 MG, UNK
  15. ALBUTEROL INHALER [Concomitant]
     Active Substance: ALBUTEROL
  16. DDAVP [Concomitant]
     Active Substance: DESMOPRESSIN ACETATE
     Dosage: UNK
  17. CARBAMAZEPINE EXTENDED RELEASE TABLETS USP 400MG [Suspect]
     Active Substance: CARBAMAZEPINE
     Dosage: 900 MG, UNK
  18. CARBAMAZEPINE EXTENDED RELEASE TABLETS USP 400MG [Suspect]
     Active Substance: CARBAMAZEPINE
     Dosage: UNK
  19. ALPRAZOLAM. [Concomitant]
     Active Substance: ALPRAZOLAM
  20. CALCIUM CITRATE [Concomitant]
     Active Substance: CALCIUM CITRATE
     Dosage: UNK

REACTIONS (5)
  - Product substitution issue [Not Recovered/Not Resolved]
  - Fatigue [Recovering/Resolving]
  - Drug ineffective for unapproved indication [Not Recovered/Not Resolved]
  - Depression [Not Recovered/Not Resolved]
  - Drug level above therapeutic [Recovering/Resolving]

NARRATIVE: CASE EVENT DATE: 201603
